FAERS Safety Report 10424439 (Version 1)
Quarter: 2014Q3

REPORT INFORMATION
  Report Type: Spontaneous
  Country: FR (occurrence: FR)
  Receive Date: 20140902
  Receipt Date: 20140902
  Transmission Date: 20150326
  Serious: Yes (Hospitalization)
  Sender: FDA-Public Use
  Company Number: FR-PFIZER INC-2014239035

PATIENT
  Age: 14 Year
  Sex: Female

DRUGS (7)
  1. VFEND [Suspect]
     Active Substance: VORICONAZOLE
     Dosage: 250 MG, 2X/DAY
     Route: 042
     Dates: start: 20140624, end: 20140714
  2. TYGACIL [Suspect]
     Active Substance: TIGECYCLINE
     Dosage: UNK
     Route: 042
     Dates: start: 20140624, end: 20140714
  3. CEFTAZIDIME PANPHARMA [Suspect]
     Active Substance: CEFTAZIDIME
     Dosage: UNK
     Route: 042
     Dates: start: 20140624, end: 20140714
  4. COLIMYCINE [Suspect]
     Active Substance: COLISTIMETHATE SODIUM
     Dosage: UNK
     Route: 042
     Dates: start: 20140624, end: 20140714
  5. AMIKACIN [Concomitant]
     Active Substance: AMIKACIN
  6. CELLCEPT [Concomitant]
     Active Substance: MYCOPHENOLATE MOFETIL\MYCOPHENOLATE MOFETIL HYDROCHLORIDE
     Dosage: UNK
     Dates: start: 20140624
  7. CICLOSPORIN [Concomitant]
     Active Substance: CYCLOSPORINE

REACTIONS (4)
  - Drug level above therapeutic [Recovered/Resolved]
  - Hepatic enzyme increased [Recovered/Resolved]
  - Jaundice [Recovered/Resolved]
  - Blood creatinine increased [Recovered/Resolved]

NARRATIVE: CASE EVENT DATE: 20140707
